FAERS Safety Report 5010199-4 (Version None)
Quarter: 2006Q2

REPORT INFORMATION
  Report Type: 
  Country: None (occurrence: None)
  Receive Date: 20060524
  Receipt Date: 20060227
  Transmission Date: 20061013
  Serious: Yes (Hospitalization)
  Sender: FDA-Public Use
  Company Number: DK-ABBOTT-06P-044-0326670-00

PATIENT
  Age: 48 Year
  Sex: Female

DRUGS (7)
  1. NORVIR [Suspect]
     Indication: HIV INFECTION
     Route: 048
     Dates: start: 20010608, end: 20030204
  2. NORVIR [Suspect]
     Route: 048
     Dates: start: 20030201
  3. SAQUINAVIR MESILATE [Suspect]
     Indication: HIV INFECTION
     Route: 048
     Dates: start: 20020912
  4. LAMIVUDINE [Concomitant]
     Indication: HIV INFECTION
     Route: 048
     Dates: start: 20010608, end: 20030204
  5. LAMIVUDINE [Concomitant]
     Route: 048
     Dates: start: 20030201
  6. EFAVIRENZ [Concomitant]
     Indication: HIV INFECTION
     Route: 048
     Dates: start: 20010608
  7. EFAVIRENZ [Concomitant]
     Route: 048
     Dates: start: 20030201

REACTIONS (2)
  - DIABETIC KETOACIDOSIS [None]
  - LIPODYSTROPHY ACQUIRED [None]
